FAERS Safety Report 9097087 (Version 1)
Quarter: 2013Q1

REPORT INFORMATION
  Report Type: Spontaneous
  Country: IT (occurrence: None)
  Receive Date: 20130123
  Receipt Date: 20130123
  Transmission Date: 20140127
  Serious: Yes (Other)
  Sender: FDA-Public Use
  Company Number: AUR-APL-2013-00748

PATIENT
  Age: 75 Year
  Sex: Female

DRUGS (3)
  1. METFORMIN (METFORMIN) [Suspect]
     Indication: DIABETES MELLITUS
     Dosage: 1 GM (1 GM, 1 IN 1 D), ORAL
     Route: 048
     Dates: start: 20101209
  2. TACHIPIRINA (PARACETAMOL) [Concomitant]
  3. ANTRA (OMEPRAZOLE) [Concomitant]

REACTIONS (4)
  - Fall [None]
  - Urinary incontinence [None]
  - Syncope [None]
  - Hyperhidrosis [None]
